FAERS Safety Report 14057646 (Version 3)
Quarter: 2017Q4

REPORT INFORMATION
  Report Type: Spontaneous
  Country: US (occurrence: US)
  Receive Date: 20171006
  Receipt Date: 20171107
  Transmission Date: 20180321
  Serious: No
  Sender: FDA-Public Use
  Company Number: US-GLAXOSMITHKLINE-US2017GSK152823

PATIENT
  Age: 74 Year
  Sex: Female

DRUGS (5)
  1. ENDOMYCIN [Suspect]
     Active Substance: NEOMYCIN
     Indication: MUSCLE SPASMS
     Dosage: UNK, U
  2. VENTOLIN HFA [Suspect]
     Active Substance: ALBUTEROL SULFATE
     Indication: PRODUCT USED FOR UNKNOWN INDICATION
     Dosage: 1 PUFF(S), PRN
     Route: 055
  3. XANAX [Concomitant]
     Active Substance: ALPRAZOLAM
  4. LISINOPRIL. [Concomitant]
     Active Substance: LISINOPRIL
  5. METOPROLOL. [Concomitant]
     Active Substance: METOPROLOL

REACTIONS (11)
  - Drug dose omission [Unknown]
  - Contusion [Recovering/Resolving]
  - Product quality issue [Unknown]
  - Visual impairment [Not Recovered/Not Resolved]
  - Groin pain [Unknown]
  - Procedural pain [Unknown]
  - Muscle spasms [Recovering/Resolving]
  - Skin discolouration [Recovering/Resolving]
  - Catheterisation cardiac [Recovering/Resolving]
  - Panic attack [Not Recovered/Not Resolved]
  - Impaired driving ability [Not Recovered/Not Resolved]

NARRATIVE: CASE EVENT DATE: 2014
